FAERS Safety Report 5033895-1 (Version None)
Quarter: 2006Q2

REPORT INFORMATION
  Report Type: 
  Country: None (occurrence: None)
  Receive Date: 20060623
  Receipt Date: 20051020
  Transmission Date: 20061013
  Serious: Yes (Disabling)
  Sender: FDA-Public Use
  Company Number: US-ABBOTT-05P-163-0314589-00

PATIENT
  Sex: Female
  Weight: 59.02 kg

DRUGS (17)
  1. HUMIRA [Suspect]
     Indication: RHEUMATOID ARTHRITIS
     Route: 058
     Dates: start: 20050601, end: 20050801
  2. SETRALINE HCL [Concomitant]
     Indication: DRUG USE FOR UNKNOWN INDICATION
     Dates: start: 20000101
  3. LEFLUNOMIDE [Concomitant]
     Indication: DRUG USE FOR UNKNOWN INDICATION
     Dates: start: 20050101
  4. IBUPROFEN [Concomitant]
     Indication: DRUG USE FOR UNKNOWN INDICATION
  5. PARACETAMOL [Concomitant]
     Indication: DRUG USE FOR UNKNOWN INDICATION
  6. VICODIN [Concomitant]
     Indication: DRUG USE FOR UNKNOWN INDICATION
  7. KINERET [Concomitant]
     Indication: DRUG USE FOR UNKNOWN INDICATION
  8. PROPACET 100 [Concomitant]
     Indication: DRUG USE FOR UNKNOWN INDICATION
  9. CEPHALEXIN [Concomitant]
     Indication: DRUG USE FOR UNKNOWN INDICATION
  10. APAP W/ CODEINE [Concomitant]
     Indication: DRUG USE FOR UNKNOWN INDICATION
  11. LORAZEPAM [Concomitant]
     Indication: DRUG USE FOR UNKNOWN INDICATION
  12. LORAZEPAM [Concomitant]
  13. AMITRIPTYLINE HCL [Concomitant]
     Indication: DRUG USE FOR UNKNOWN INDICATION
  14. CYCLOBENZAPRINE HCL [Concomitant]
     Indication: DRUG USE FOR UNKNOWN INDICATION
  15. CYMBALTA [Concomitant]
     Indication: DRUG USE FOR UNKNOWN INDICATION
  16. KETOROLAC [Concomitant]
     Indication: DRUG USE FOR UNKNOWN INDICATION
  17. DIPHTHERIA AND TETANUS TOXOIDS [Concomitant]
     Indication: DRUG USE FOR UNKNOWN INDICATION
     Route: 030
     Dates: start: 20040315, end: 20040315

REACTIONS (19)
  - ABNORMAL SENSATION IN EYE [None]
  - ASTHENIA [None]
  - BACK INJURY [None]
  - BLINDNESS UNILATERAL [None]
  - CONJUNCTIVITIS INFECTIVE [None]
  - CRYING [None]
  - FALL [None]
  - HYPOAESTHESIA [None]
  - HYPOKINESIA [None]
  - NECK PAIN [None]
  - NERVOUS SYSTEM DISORDER [None]
  - NUCLEAR MAGNETIC RESONANCE IMAGING BRAIN ABNORMAL [None]
  - OEDEMA PERIPHERAL [None]
  - PAIN [None]
  - SHOULDER PAIN [None]
  - SPINAL OSTEOARTHRITIS [None]
  - VAGINAL CANDIDIASIS [None]
  - VAGINAL CYST [None]
  - VISUAL DISTURBANCE [None]
